FAERS Safety Report 4805957-2 (Version None)
Quarter: 2005Q4

REPORT INFORMATION
  Report Type: 
  Country: None (occurrence: None)
  Receive Date: 20051019
  Receipt Date: 20051005
  Transmission Date: 20060501
  Serious: Yes (Hospitalization)
  Sender: FDA-Public Use
  Company Number: USA0508106697

PATIENT
  Age: 70 Year
  Sex: Female

DRUGS (6)
  1. FORTEO [Suspect]
     Dates: start: 20050603, end: 20050730
  2. METHOTREXATE [Concomitant]
  3. LOVASTATIN [Concomitant]
  4. NIACIN [Concomitant]
  5. DIURETIC [Concomitant]
  6. REMICADE [Concomitant]

REACTIONS (7)
  - CONDITION AGGRAVATED [None]
  - ERYTHEMA [None]
  - HYPERSENSITIVITY [None]
  - OEDEMA PERIPHERAL [None]
  - RASH PRURITIC [None]
  - RHEUMATOID ARTHRITIS [None]
  - SKIN INFECTION [None]
